FAERS Safety Report 8538558-3 (Version None)
Quarter: 2012Q3

REPORT INFORMATION
  Report Type: 
  Country: None (occurrence: None)
  Receive Date: 20120718
  Receipt Date: 20120718
  Transmission Date: 20120928
  Serious: No
  Sender: FDA-Public Use
  Company Number: None

PATIENT
  Age: 78 Year
  Sex: Male
  Weight: 97.5234 kg

DRUGS (2)
  1. LEVOFLOXACIN [Suspect]
     Indication: URINARY TRACT DISORDER
     Dosage: 1/2 TAB DAILY MOUTH
     Route: 048
     Dates: start: 20120614, end: 20120617
  2. LEVOFLOXACIN [Suspect]
     Indication: INFECTION
     Dosage: 1/2 TAB DAILY MOUTH
     Route: 048
     Dates: start: 20120614, end: 20120617

REACTIONS (5)
  - TRANSIENT ISCHAEMIC ATTACK [None]
  - CEREBROVASCULAR ACCIDENT [None]
  - BLOOD GLUCOSE INCREASED [None]
  - PAIN [None]
  - PAIN IN EXTREMITY [None]
